FAERS Safety Report 16804144 (Version 1)
Quarter: 2019Q3

REPORT INFORMATION
  Report Type: Spontaneous
  Country: DE (occurrence: DE)
  Receive Date: 20190913
  Receipt Date: 20190913
  Transmission Date: 20191005
  Serious: Yes (Life-Threatening, Hospitalization, Other)
  Sender: FDA-Public Use
  Company Number: DE-TEVA-2019-DE-1019654

PATIENT
  Age: 50 Year
  Sex: Female
  Weight: 80 kg

DRUGS (4)
  1. SUFENTANIL [Concomitant]
     Active Substance: SUFENTANIL
     Indication: INDUCTION OF ANAESTHESIA
     Dosage: APPLICATION AT 09:50 WATCH
     Route: 042
  2. PROPOFOL. [Concomitant]
     Active Substance: PROPOFOL
     Indication: INDUCTION OF ANAESTHESIA
     Dosage: APPLICATION AT 09:50 WATCH
     Route: 042
  3. LEVOFLOXACIN. [Suspect]
     Active Substance: LEVOFLOXACIN
     Indication: ANTIBIOTIC PROPHYLAXIS
     Dosage: PRICE RATE FUSION, APPLICATION OF 10:20-10:35 AM
     Route: 042
  4. ATRACURIUM [Concomitant]
     Active Substance: ATRACURIUM
     Indication: INDUCTION OF ANAESTHESIA
     Dosage: APPLICATION AT 09:55
     Route: 042

REACTIONS (3)
  - Anaphylactic shock [Recovered/Resolved]
  - Flushing [Recovered/Resolved]
  - Fluid retention [Recovered/Resolved]

NARRATIVE: CASE EVENT DATE: 20190201
